FAERS Safety Report 23132415 (Version 1)
Quarter: 2023Q4

REPORT INFORMATION
  Report Type: Report from Study
  Country: US (occurrence: US)
  Receive Date: 20231101
  Receipt Date: 20231101
  Transmission Date: 20240109
  Serious: Yes (Other)
  Sender: FDA-Public Use
  Company Number: US-ABBVIE-5474370

PATIENT
  Sex: Male

DRUGS (3)
  1. SKYRIZI [Suspect]
     Active Substance: RISANKIZUMAB-RZAA
     Indication: Psoriatic arthropathy
     Dosage: STRENGTH:150MG/ML
     Route: 058
     Dates: start: 20231010
  2. SKYRIZI [Suspect]
     Active Substance: RISANKIZUMAB-RZAA
     Dosage: TIME INTERVAL: TOTAL: STRENGTH:150MG/ML?WEEK 0
     Route: 058
     Dates: start: 20230612, end: 20230612
  3. SKYRIZI [Suspect]
     Active Substance: RISANKIZUMAB-RZAA
     Dosage: TIME INTERVAL: TOTAL: STRENGTH:150MG/ML?WEEK 4
     Route: 058
     Dates: start: 202307, end: 202307

REACTIONS (6)
  - Cataract [Unknown]
  - Road traffic accident [Unknown]
  - Headache [Unknown]
  - Musculoskeletal stiffness [Unknown]
  - Ligament sprain [Unknown]
  - Pain [Unknown]

NARRATIVE: CASE EVENT DATE: 20230101
